FAERS Safety Report 7011412-4 (Version None)
Quarter: 2010Q3

REPORT INFORMATION
  Report Type: 
  Country: None (occurrence: None)
  Receive Date: 20100923
  Receipt Date: 20090108
  Transmission Date: 20110219
  Serious: No
  Sender: FDA-Public Use
  Company Number: US-WYE-H07651509

PATIENT
  Sex: Female
  Weight: 75.82 kg

DRUGS (1)
  1. PREMARIN [Suspect]
     Indication: HORMONE REPLACEMENT THERAPY
     Route: 048
     Dates: start: 19940101

REACTIONS (4)
  - ALOPECIA [None]
  - ANXIETY [None]
  - FATIGUE [None]
  - HYPERTENSION [None]
